FAERS Safety Report 7068464-5 (Version None)
Quarter: 2010Q4

REPORT INFORMATION
  Report Type: 
  Country: None (occurrence: None)
  Receive Date: 20101028
  Receipt Date: 20101018
  Transmission Date: 20110411
  Serious: Yes (Other)
  Sender: FDA-Public Use
  Company Number: US-ROCHE-734931

PATIENT

DRUGS (4)
  1. CAPECITABINE [Suspect]
     Route: 048
  2. DOCETAXEL [Suspect]
     Dosage: ON DAYS 1 AND 8 EVERY 3 WEEKS
     Route: 042
  3. OXALIPLATIN [Suspect]
     Dosage: ON DAYS 1 AND 8 EVERY 3 WEEKS
     Route: 042
  4. DEXAMETHASONE [Concomitant]
     Dosage: 3 DOSES: NIGHT BEFORE, THE MORNING OF, THE EVENING AFTER DOCETAXEL.
     Route: 048

REACTIONS (12)
  - ANAEMIA [None]
  - DEHYDRATION [None]
  - DIARRHOEA [None]
  - DRUG HYPERSENSITIVITY [None]
  - FATIGUE [None]
  - GASTROINTESTINAL OBSTRUCTION [None]
  - LEUKOPENIA [None]
  - NAIL DISORDER [None]
  - NAUSEA [None]
  - NEUROPATHY PERIPHERAL [None]
  - OEDEMA PERIPHERAL [None]
  - VOMITING [None]
